FAERS Safety Report 11327366 (Version 1)
Quarter: 2015Q3

REPORT INFORMATION
  Report Type: Spontaneous
  Country: US (occurrence: None)
  Receive Date: 20150730
  Receipt Date: 20150730
  Transmission Date: 20151125
  Serious: No
  Sender: FDA-Public Use
  Company Number: None

PATIENT
  Age: 75 Year
  Sex: Female

DRUGS (1)
  1. HUMIRA [Suspect]
     Active Substance: ADALIMUMAB
     Route: 058
     Dates: start: 20150303, end: 20150710

REACTIONS (3)
  - Injection site pruritus [None]
  - Hypersensitivity [None]
  - Injection site erythema [None]

NARRATIVE: CASE EVENT DATE: 20150701
